FAERS Safety Report 8963020 (Version 3)
Quarter: 2013Q2

REPORT INFORMATION
  Report Type: Spontaneous
  Country: US (occurrence: None)
  Receive Date: 20121204
  Receipt Date: 20130429
  Transmission Date: 20140414
  Serious: Yes (Other)
  Sender: FDA-Public Use
  Company Number: CIO12023179

PATIENT
  Age: 7 Year
  Sex: Male
  Weight: 24 kg

DRUGS (1)
  1. CHILDREN^S PEPTO, BUBBLE GUM FLAVOR(CALCIUM CARBONATE 400 MG) CHEWABLE TABLET, 1TABLET [Suspect]
     Dosage: 2 TABLET, 1 ONLY FOR 1 DAY, ORAL
     Route: 048
     Dates: start: 20121025, end: 20121025

REACTIONS (14)
  - Anaphylactic reaction [None]
  - Pharyngeal oedema [None]
  - Pharyngeal disorder [None]
  - Vomiting projectile [None]
  - Urticaria [None]
  - Pruritus generalised [None]
  - Flushing [None]
  - Generalised erythema [None]
  - Paraesthesia oral [None]
  - Eye swelling [None]
  - Lip swelling [None]
  - Swelling [None]
  - Ear swelling [None]
  - Cheilitis [None]
